FAERS Safety Report 12295822 (Version 1)
Quarter: 2016Q2

REPORT INFORMATION
  Report Type: Spontaneous
  Country: US (occurrence: US)
  Receive Date: 20160422
  Receipt Date: 20160422
  Transmission Date: 20160815
  Serious: Yes (Other)
  Sender: FDA-Public Use
  Company Number: US-PURDUE PHARMA-USA-2016-0129092

PATIENT
  Sex: Male

DRUGS (1)
  1. OXYCODONE HCL CR TABLETS (SIMILAR TO NDA 22-272) [Suspect]
     Active Substance: OXYCODONE HYDROCHLORIDE
     Indication: PAIN

REACTIONS (11)
  - Drug withdrawal syndrome [Unknown]
  - Disturbance in attention [Unknown]
  - Tachyphrenia [Unknown]
  - Neck pain [Unknown]
  - Drug abuse [Unknown]
  - Drug dependence [Unknown]
  - Asthenopia [Unknown]
  - Back pain [Unknown]
  - Unevaluable event [Unknown]
  - Somnolence [Unknown]
  - Euphoric mood [Unknown]
